FAERS Safety Report 4437296-6 (Version None)
Quarter: 2004Q3

REPORT INFORMATION
  Report Type: 
  Country: None (occurrence: None)
  Receive Date: 20040726
  Receipt Date: 20040329
  Transmission Date: 20050211
  Serious: No
  Sender: FDA-Public Use
  Company Number: USA040363468

PATIENT
  Age: 62 Year
  Sex: Female

DRUGS (7)
  1. FORTEO [Suspect]
     Indication: OSTEOPOROSIS
     Dosage: 20 UG/DAY
     Dates: start: 20040315
  2. CALAN [Concomitant]
  3. AMBIEN [Concomitant]
  4. CALCIUM [Concomitant]
  5. MULTI-VITAMIN [Concomitant]
  6. COENZYME Q10 [Concomitant]
  7. VITAMIN E [Concomitant]

REACTIONS (2)
  - DIZZINESS [None]
  - INJECTION SITE HAEMORRHAGE [None]
